FAERS Safety Report 17266443 (Version 1)
Quarter: 2019Q4

REPORT INFORMATION
  Report Type: Spontaneous
  Country: US (occurrence: US)
  Receive Date: 20191219
  Receipt Date: 20191219
  Transmission Date: 20200122
  Serious: Yes (Hospitalization)
  Sender: FDA-Public Use
  Company Number: None

PATIENT
  Age: 62 Year
  Sex: Male

DRUGS (1)
  1. WARFARIN (WARFARIN NA (EXELAN) 7.5MG TAB) [Suspect]
     Active Substance: WARFARIN SODIUM
     Indication: VASCULAR OPERATION
     Route: 048
     Dates: start: 20190102, end: 20190909

REACTIONS (3)
  - Intermittent claudication [None]
  - Vascular graft thrombosis [None]
  - Paraesthesia [None]

NARRATIVE: CASE EVENT DATE: 20190906
